FAERS Safety Report 17498472 (Version 1)
Quarter: 2020Q1

REPORT INFORMATION
  Report Type: Spontaneous
  Country: US (occurrence: US)
  Receive Date: 20200304
  Receipt Date: 20200304
  Transmission Date: 20200409
  Serious: No
  Sender: FDA-Public Use
  Company Number: US-009507513-2003USA000938

PATIENT
  Sex: Female

DRUGS (1)
  1. NUVARING [Suspect]
     Active Substance: ETHINYL ESTRADIOL\ETONOGESTREL
     Indication: ENDOMETRIOSIS
     Dosage: 1 RING
     Route: 067

REACTIONS (3)
  - Product use in unapproved indication [Unknown]
  - Medical device site discomfort [Unknown]
  - Device breakage [Unknown]

NARRATIVE: CASE EVENT DATE: 20200302
